FAERS Safety Report 23963490 (Version 1)
Quarter: 2024Q2

REPORT INFORMATION
  Report Type: Spontaneous
  Country: US (occurrence: None)
  Receive Date: 20240610
  Receipt Date: 20240610
  Transmission Date: 20240716
  Serious: Yes (Life-Threatening, Hospitalization)
  Sender: FDA-Public Use
  Company Number: None

PATIENT
  Age: 32 Year
  Sex: Male
  Weight: 62 kg

DRUGS (1)
  1. LEVOFLOXACIN [Suspect]
     Active Substance: LEVOFLOXACIN
     Dosage: FREQUENCY : DAILY;?
     Route: 048

REACTIONS (3)
  - Cardiac tamponade [None]
  - Aortic pseudoaneurysm [None]
  - Sinus tachycardia [None]

NARRATIVE: CASE EVENT DATE: 20240603
